FAERS Safety Report 8121344-6 (Version None)
Quarter: 2012Q1

REPORT INFORMATION
  Report Type: 
  Country: None (occurrence: None)
  Receive Date: 20120203
  Receipt Date: 20120124
  Transmission Date: 20120608
  Serious: Yes (Life-Threatening, Hospitalization)
  Sender: FDA-Public Use
  Company Number: TPA2012A00517

PATIENT
  Age: 63 Year
  Sex: Male

DRUGS (10)
  1. TORSEMIDE [Concomitant]
  2. CARVEDILOL [Concomitant]
  3. ASPIRIN [Concomitant]
  4. REVARTIO (SILDENAFIL CITRATE) [Concomitant]
  5. INSPRA (MONTELUKAST SODIUIM) [Concomitant]
  6. MARCUMAR [Concomitant]
  7. RAMIPRIL [Concomitant]
  8. ADENURIC (FEBUXOSTAT) [Suspect]
     Indication: GOUT
     Dosage: 80 MG (80 MG, 1 IN 1 D), ORAL
     Route: 048
     Dates: start: 20111107, end: 20111219
  9. ADENURIC (FEBUXOSTAT) [Suspect]
     Indication: HYPERURICAEMIA
     Dosage: 80 MG (80 MG, 1 IN 1 D), ORAL
     Route: 048
     Dates: start: 20111107, end: 20111219
  10. ATORVASTATIN CALCIUM [Concomitant]

REACTIONS (3)
  - GAMMA-GLUTAMYLTRANSFERASE INCREASED [None]
  - JAUNDICE [None]
  - BLOOD BILIRUBIN INCREASED [None]
